FAERS Safety Report 9862741 (Version 1)
Quarter: 2014Q1

REPORT INFORMATION
  Report Type: Spontaneous
  Country: GB (occurrence: None)
  Receive Date: 20140130
  Receipt Date: 20140130
  Transmission Date: 20141002
  Serious: Yes (Other)
  Sender: FDA-Public Use
  Company Number: KAD201401-000089

PATIENT
  Age: 61 Year
  Sex: Female

DRUGS (4)
  1. RIBAVIRIN [Suspect]
     Indication: HEPATITIS C
     Route: 048
     Dates: start: 20130601
  2. DILTIAZEM [Suspect]
     Indication: BLOOD PRESSURE
     Route: 048
  3. PEGINTERFERON ALFA [Suspect]
     Dosage: INJECTION, ONCE WEEKLY,
     Route: 058
     Dates: start: 20130601
  4. TELAPREVIR [Suspect]
     Dosage: TABLET, 750 MG, THRICE DAILY, ORAL
     Route: 048
     Dates: start: 20130601

REACTIONS (7)
  - Hypertension [None]
  - Drug interaction [None]
  - Anxiety [None]
  - Influenza like illness [None]
  - Irritability [None]
  - Nausea [None]
  - Proctalgia [None]
